FAERS Safety Report 22324135 (Version 1)
Quarter: 2023Q2

REPORT INFORMATION
  Report Type: Spontaneous
  Country: US (occurrence: US)
  Receive Date: 20230516
  Receipt Date: 20230516
  Transmission Date: 20230721
  Serious: No
  Sender: FDA-Public Use
  Company Number: US-PFIZER INC-202300187616

PATIENT
  Age: 54 Year
  Sex: Female
  Weight: 85.73 kg

DRUGS (2)
  1. PAXLOVID [Suspect]
     Active Substance: NIRMATRELVIR\RITONAVIR
     Indication: COVID-19 treatment
     Dosage: [PF-07321332 300 MG]/[RITONAVIR 100 MG], 2X/DAY
     Dates: start: 20230425, end: 202304
  2. BENZONATATE [Concomitant]
     Active Substance: BENZONATATE
     Indication: Cough

REACTIONS (2)
  - Dysgeusia [Unknown]
  - Body height decreased [Unknown]
